FAERS Safety Report 6814078-9 (Version None)
Quarter: 2010Q3

REPORT INFORMATION
  Report Type: 
  Country: None (occurrence: None)
  Receive Date: 20100702
  Receipt Date: 20100628
  Transmission Date: 20110219
  Serious: Yes (Death, Other)
  Sender: FDA-Public Use
  Company Number: PHFR2010GB01092

PATIENT
  Age: 34 Year
  Sex: Male

DRUGS (3)
  1. CLOZAPINE [Suspect]
     Dosage: UNK
     Dates: start: 20010701, end: 20081127
  2. ZAPONEX [Suspect]
     Dosage: UNK
     Route: 048
     Dates: start: 20081128, end: 20081224
  3. VALPROATE SODIUM [Concomitant]

REACTIONS (3)
  - CARDIAC HYPERTROPHY [None]
  - SLEEP APNOEA SYNDROME [None]
  - WEIGHT INCREASED [None]
